FAERS Safety Report 8988978 (Version 1)
Quarter: 2012Q4

REPORT INFORMATION
  Report Type: Report from Study
  Country: RU (occurrence: RU)
  Receive Date: 20121228
  Receipt Date: 20121228
  Transmission Date: 20130627
  Serious: Yes (Other)
  Sender: FDA-Public Use
  Company Number: RU-ROCHE-1174973

PATIENT
  Age: 47 Year
  Sex: Male
  Weight: 51 kg

DRUGS (4)
  1. BEVACIZUMAB [Suspect]
     Indication: COLON CANCER
     Route: 065
     Dates: start: 20120206, end: 20120503
  2. 5-FLUOROURACIL [Concomitant]
     Indication: COLON CANCER
     Dosage: 400/600mg/m2
     Route: 041
     Dates: start: 20120206, end: 20120503
  3. LEUCOVORIN [Concomitant]
     Indication: COLON CANCER
     Route: 040
     Dates: start: 20120206, end: 20120503
  4. OXALIPLATIN [Concomitant]
     Indication: COLON CANCER
     Route: 040
     Dates: start: 20120206, end: 20120503

REACTIONS (1)
  - Disease progression [Unknown]
